FAERS Safety Report 15426767 (Version 13)
Quarter: 2022Q3

REPORT INFORMATION
  Report Type: Report from Study
  Country: CO (occurrence: CO)
  Receive Date: 20180925
  Receipt Date: 20220128
  Transmission Date: 20221026
  Serious: Yes (Hospitalization, Other)
  Sender: FDA-Public Use
  Company Number: CO-002147023-PHHY2018CO103311

PATIENT

DRUGS (5)
  1. RUXOLITINIB [Suspect]
     Active Substance: RUXOLITINIB
     Indication: Polycythaemia vera
     Dosage: 30 MG, QD
     Route: 048
     Dates: start: 2016
  2. RUXOLITINIB [Suspect]
     Active Substance: RUXOLITINIB
     Dosage: 20 MG, QD (1 TABLET)
     Route: 048
  3. RUXOLITINIB [Suspect]
     Active Substance: RUXOLITINIB
     Dosage: UNK
     Route: 048
  4. HYDROXYUREA [Suspect]
     Active Substance: HYDROXYUREA
     Indication: Polycythaemia vera
     Dosage: UNK
     Route: 065
  5. ASPIRIN [Concomitant]
     Active Substance: ASPIRIN
     Indication: Product used for unknown indication
     Dosage: 100 MG, QD
     Route: 048

REACTIONS (29)
  - Eye injury [Unknown]
  - Discomfort [Unknown]
  - Epistaxis [Unknown]
  - Contusion [Unknown]
  - Thrombosis [Unknown]
  - Dizziness [Unknown]
  - Pain [Unknown]
  - Fall [Recovered/Resolved]
  - Feeling abnormal [Unknown]
  - Influenza [Unknown]
  - Memory impairment [Unknown]
  - Gastritis [Unknown]
  - Headache [Unknown]
  - Haematoma [Recovering/Resolving]
  - Haemoglobin decreased [Unknown]
  - Blood pressure increased [Unknown]
  - Skin cancer [Unknown]
  - Drug intolerance [Unknown]
  - Pain in extremity [Unknown]
  - Tremor [Unknown]
  - Inappropriate schedule of product administration [Unknown]
  - Platelet count increased [Unknown]
  - Polycythaemia vera [Unknown]
  - Recurrent cancer [Recovered/Resolved]
  - Recurrent cancer [Unknown]
  - Movement disorder [Not Recovered/Not Resolved]
  - Spinal disorder [Unknown]
  - Gastrointestinal disorder [Unknown]
  - Illness [Unknown]

NARRATIVE: CASE EVENT DATE: 20180906
